FAERS Safety Report 5660751-8 (Version None)
Quarter: 2008Q1

REPORT INFORMATION
  Report Type: 
  Country: None (occurrence: None)
  Receive Date: 20080311
  Receipt Date: 20080303
  Transmission Date: 20080703
  Serious: Yes (Hospitalization)
  Sender: FDA-Public Use
  Company Number: US-ELI_LILLY_AND_COMPANY-US200803000664

PATIENT
  Sex: Female
  Weight: 102.49 kg

DRUGS (14)
  1. BYETTA [Suspect]
     Dosage: 5 UG, 2/D
     Route: 058
     Dates: start: 20070301, end: 20070401
  2. BYETTA [Suspect]
     Dosage: 10 UG, 2/D
     Route: 058
     Dates: start: 20070401
  3. ASPIRIN [Concomitant]
     Dosage: 81 MG, UNK
     Route: 048
  4. ALLOPURINOL [Concomitant]
     Indication: GOUT
     Dosage: 100 MG, AS NEEDED
     Route: 048
  5. LOTENSIN [Concomitant]
     Indication: HYPERTENSION
     Dosage: 20 MG, 2/D
     Route: 048
  6. COLCHICINE [Concomitant]
     Indication: GOUT
     Dosage: UNK, AS NEEDED
     Route: 048
  7. VITAMIN D [Concomitant]
     Indication: OSTEOPOROSIS
     Dosage: UNK, 2/D
     Route: 048
  8. LASIX [Concomitant]
     Dosage: 40 MG, DAILY (1/D)
     Route: 048
  9. ISOPHANE INSULIN [Concomitant]
     Dosage: 45 U, EACH MORNING
     Route: 058
  10. ISOPHANE INSULIN [Concomitant]
     Dosage: 30 U, EACH EVENING
     Route: 058
  11. PRILOSEC [Concomitant]
     Indication: GASTROOESOPHAGEAL REFLUX DISEASE
     Dosage: 40 MG, DAILY (1/D)
     Route: 048
  12. INSULIN [Concomitant]
     Dosage: UNK, AS NEEDED
     Route: 058
  13. ZOLOFT [Concomitant]
     Indication: DEPRESSION
     Dosage: 50 MG, DAILY (1/D)
     Route: 048
  14. M.V.I. [Concomitant]
     Dosage: UNK, UNKNOWN
     Route: 048

REACTIONS (4)
  - DECREASED APPETITE [None]
  - HYPERTENSION [None]
  - MALAISE [None]
  - WEIGHT DECREASED [None]
